FAERS Safety Report 7488813-3 (Version None)
Quarter: 2011Q2

REPORT INFORMATION
  Report Type: 
  Country: None (occurrence: None)
  Receive Date: 20110511
  Receipt Date: 20110502
  Transmission Date: 20111010
  Serious: Yes (Other)
  Sender: FDA-Public Use
  Company Number: 1000020691

PATIENT
  Age: 32 Year
  Sex: Male

DRUGS (6)
  1. ASPIRIN [Concomitant]
  2. DILTIAZEM [Suspect]
  3. SEVELAMER (SEVELAMER HYDROCHLORIDE)(SEVELAMER HYDROCHLORIDE) [Concomitant]
  4. MINOXIDIL [Suspect]
     Indication: HYPERTENSION
  5. CALCIUM CARBONATE (CALCIUM CARBONATE)(CALCIUM CARBONATE) [Concomitant]
  6. ATENOLOL [Concomitant]

REACTIONS (6)
  - LEFT VENTRICULAR HYPERTROPHY [None]
  - PERIPORTAL OEDEMA [None]
  - CARDIAC TAMPONADE [None]
  - EJECTION FRACTION DECREASED [None]
  - PERICARDIAL EFFUSION [None]
  - INGUINAL HERNIA [None]
